FAERS Safety Report 12853022 (Version 1)
Quarter: 2016Q4

REPORT INFORMATION
  Report Type: Report from Study
  Country: US (occurrence: US)
  Receive Date: 20161017
  Receipt Date: 20161017
  Transmission Date: 20170207
  Serious: Yes (Hospitalization, Other)
  Sender: FDA-Public Use
  Company Number: US-AMGEN-USASL2016131708

PATIENT
  Age: 47 Year
  Sex: Male
  Weight: 81.7 kg

DRUGS (18)
  1. VITAMIN B6 [Concomitant]
     Active Substance: PYRIDOXINE HYDROCHLORIDE
     Dosage: 50 MG, UNK
     Route: 048
  2. BLINCYTO [Suspect]
     Active Substance: BLINATUMOMAB
     Indication: ACUTE LYMPHOCYTIC LEUKAEMIA RECURRENT
     Dosage: 28 MUG, QD
     Route: 042
     Dates: start: 20160616, end: 20160914
  3. LOVENOX [Concomitant]
     Active Substance: ENOXAPARIN SODIUM
  4. LIPITOR [Concomitant]
     Active Substance: ATORVASTATIN CALCIUM
     Indication: HYPERTENSION
  5. COLACE [Concomitant]
     Active Substance: DOCUSATE SODIUM
     Dosage: 100 MG, TID
     Route: 048
  6. PROZAC [Concomitant]
     Active Substance: FLUOXETINE HYDROCHLORIDE
     Indication: DEPRESSION
     Dosage: 20 MG, QD
  7. KEPPRA [Concomitant]
     Active Substance: LEVETIRACETAM
     Dosage: 750 MG, Q12H
     Route: 048
  8. LIORESAL [Concomitant]
     Active Substance: BACLOFEN
     Indication: HICCUPS
     Dosage: 20 MG, Q8H
     Route: 048
  9. PROTONIX [Concomitant]
     Active Substance: PANTOPRAZOLE SODIUM
     Dosage: 20 MG, QD
     Route: 048
  10. PROZAC [Concomitant]
     Active Substance: FLUOXETINE HYDROCHLORIDE
     Indication: INSOMNIA
  11. MELATONIN [Concomitant]
     Active Substance: MELATONIN
     Indication: HICCUPS
     Dosage: 3 MG, UNK
     Route: 048
  12. MELATONIN [Concomitant]
     Active Substance: MELATONIN
     Indication: INSOMNIA
  13. SENNA [Concomitant]
     Active Substance: SENNA LEAF\SENNOSIDES\SENNOSIDES A AND B
     Dosage: 8.6 MG, BID
     Route: 048
  14. LIPITOR [Concomitant]
     Active Substance: ATORVASTATIN CALCIUM
     Indication: HYPERLIPIDAEMIA
     Dosage: 40 MG, QHS
     Route: 048
  15. MELATONIN [Concomitant]
     Active Substance: MELATONIN
     Indication: DEPRESSION
  16. OXYCODONE [Concomitant]
     Active Substance: OXYCODONE
     Indication: PAIN
     Dosage: 5 MG, UNK
  17. ZOVIRAX [Concomitant]
     Active Substance: ACYCLOVIR
     Dosage: 400 MG, QD
     Route: 048
  18. PROZAC [Concomitant]
     Active Substance: FLUOXETINE HYDROCHLORIDE
     Indication: HICCUPS

REACTIONS (11)
  - Mental status changes [Recovered/Resolved]
  - Pyrexia [Recovered/Resolved]
  - Amnesia [Unknown]
  - Confusional state [Unknown]
  - Urinary tract infection [Recovered/Resolved]
  - Acute lymphocytic leukaemia recurrent [Unknown]
  - Rash erythematous [Recovering/Resolving]
  - Hypotension [Unknown]
  - Gait disturbance [Unknown]
  - Abasia [Unknown]
  - Chills [Recovered/Resolved]

NARRATIVE: CASE EVENT DATE: 2016
